FAERS Safety Report 8786913 (Version 1)
Quarter: 2012Q4

REPORT INFORMATION
  Report Type: 
  Country: US (occurrence: US)
  Receive Date: 20120914
  Receipt Date: 20120914
  Transmission Date: 20130627
  Serious: Yes (Other)
  Sender: FDA-Public Use
  Company Number: US-VERTEX PHARMACEUTICAL INC.-AE-2012-007497

PATIENT
  Age: 65 Year
  Sex: Female
  Weight: 102.27 kg

DRUGS (8)
  1. INCIVEK [Suspect]
     Indication: HEPATITIS C
     Route: 048
     Dates: start: 20120203, end: 20120427
  2. PEGASYS [Concomitant]
     Indication: HEPATITIS C
     Route: 058
     Dates: start: 20120203
  3. RIBASPHERE [Concomitant]
     Indication: HEPATITIS C
     Route: 048
     Dates: start: 20120203
  4. RIBASPHERE [Concomitant]
     Route: 048
     Dates: end: 20120504
  5. ZESTRIL [Concomitant]
     Route: 048
  6. ALEVE [Concomitant]
  7. DOPAMINE [Concomitant]
  8. PHENERGAN [Concomitant]

REACTIONS (4)
  - Haemoglobin decreased [Unknown]
  - White blood cell count decreased [Not Recovered/Not Resolved]
  - Thrombosis [Recovered/Resolved]
  - Pain in extremity [Unknown]
